FAERS Safety Report 17982965 (Version 1)
Quarter: 2020Q3

REPORT INFORMATION
  Report Type: Spontaneous
  Country: US (occurrence: US)
  Receive Date: 20200706
  Receipt Date: 20200706
  Transmission Date: 20201103
  Serious: No
  Sender: FDA-Public Use
  Company Number: US-PFIZER INC-2020255011

PATIENT
  Age: 28 Year
  Sex: Female

DRUGS (5)
  1. RITUXAN [Suspect]
     Active Substance: RITUXIMAB
     Dosage: UNK
     Dates: start: 20200630
  2. BENADRYL [Concomitant]
     Active Substance: DIPHENHYDRAMINE HYDROCHLORIDE
     Indication: PREMEDICATION
     Dosage: UNK
     Dates: start: 20200630
  3. RITUXIMAB. [Suspect]
     Active Substance: RITUXIMAB
     Dosage: UNK
     Dates: start: 20200630
  4. RITUXAN [Suspect]
     Active Substance: RITUXIMAB
     Indication: RHEUMATOID ARTHRITIS
     Dosage: UNK
     Dates: start: 2019
  5. RITUXIMAB. [Suspect]
     Active Substance: RITUXIMAB
     Indication: RHEUMATOID ARTHRITIS
     Dosage: UNK
     Dates: start: 2019

REACTIONS (7)
  - Product use in unapproved indication [Unknown]
  - Infusion site extravasation [Unknown]
  - Skin striae [Unknown]
  - Off label use [Unknown]
  - Infusion site swelling [Unknown]
  - Infusion site induration [Unknown]
  - Infusion site warmth [Unknown]

NARRATIVE: CASE EVENT DATE: 2019
